FAERS Safety Report 8165524-2 (Version None)
Quarter: 2012Q1

REPORT INFORMATION
  Report Type: 
  Country: None (occurrence: None)
  Receive Date: 20120227
  Receipt Date: 20101117
  Transmission Date: 20120608
  Serious: Yes (Hospitalization, Other)
  Sender: FDA-Public Use
  Company Number: DE-UCBSA-028205

PATIENT
  Sex: Male

DRUGS (25)
  1. VIMPAT [Suspect]
     Dates: start: 20090101, end: 20090101
  2. VALPROIC ACID [Concomitant]
  3. OXC [Concomitant]
     Dates: end: 20090101
  4. VIMPAT [Suspect]
     Dosage: UNKNOWN DOSE
  5. VIMPAT [Suspect]
     Dates: start: 20090101
  6. ZNS [Concomitant]
  7. ZENTROPIL [Concomitant]
     Dates: start: 20100101, end: 20100101
  8. VIMPAT [Suspect]
     Dates: start: 20100101
  9. KEPPRA [Concomitant]
  10. VALPROIC ACID [Concomitant]
  11. VALPROIC ACID [Concomitant]
     Dosage: 1250/1500 MG/DAY
  12. PHT [Concomitant]
     Dates: start: 20090101
  13. ZENTROPIL [Concomitant]
     Dates: start: 20100101
  14. LTG [Concomitant]
  15. OXC [Concomitant]
     Dosage: 600-300-450
     Dates: start: 20090101, end: 20100101
  16. OXC [Concomitant]
     Dates: start: 20100101
  17. RISPERIDONE [Concomitant]
     Dates: start: 20100101, end: 20100101
  18. VALPROIC ACID [Concomitant]
     Dosage: 250-0-500
  19. LTG [Concomitant]
     Dates: end: 20090101
  20. TPM [Concomitant]
  21. PHB [Concomitant]
  22. VIMPAT [Suspect]
     Dates: end: 20100101
  23. KEPPRA [Concomitant]
  24. PHT [Concomitant]
     Dates: end: 20090101
  25. PHT [Concomitant]
     Dosage: REDUCED WEEKLY DECREMENTS OF 50 MG

REACTIONS (6)
  - CONVULSION [None]
  - PARTIAL SEIZURES [None]
  - HYPERTENSION [None]
  - PARANOIA [None]
  - HYPOTHYROIDISM [None]
  - DIZZINESS [None]
